FAERS Safety Report 7684746-8 (Version None)
Quarter: 2011Q3

REPORT INFORMATION
  Report Type: 
  Country: None (occurrence: None)
  Receive Date: 20110816
  Receipt Date: 20110803
  Transmission Date: 20111222
  Serious: Yes (Hospitalization)
  Sender: FDA-Public Use
  Company Number: US-ELI_LILLY_AND_COMPANY-US201108002097

PATIENT
  Sex: Female

DRUGS (21)
  1. CONCERTA [Concomitant]
  2. METHOTREXATE [Concomitant]
  3. FORTEO [Suspect]
     Indication: OSTEOPOROSIS
     Dosage: 20 UG, QD
     Dates: start: 20101001, end: 20110401
  4. ONE-A-DAY [Concomitant]
  5. DOCUSATE SODIUM [Concomitant]
  6. LEVOTHYROXINE SODIUM [Concomitant]
  7. BUSPIRONE HCL [Concomitant]
  8. ANTIHISTAMINES [Concomitant]
  9. FOLIC ACID [Concomitant]
  10. ARICEPT [Concomitant]
  11. CALCIUM CARBONATE [Concomitant]
  12. DIVALPROEX SODIUM [Concomitant]
  13. VITAMIN D [Concomitant]
  14. PYRIDOSTIGMINE BROMIDE [Concomitant]
  15. ENABLEX                            /01760402/ [Concomitant]
  16. PREDNISONE [Concomitant]
  17. FUROSEMIDE [Concomitant]
  18. LAMOTRIGINE [Concomitant]
  19. LORAZEPAM [Concomitant]
  20. LISINOPRIL [Concomitant]
  21. INSULIN GLARGINE [Concomitant]

REACTIONS (6)
  - MUSCULAR WEAKNESS [None]
  - CATARACT [None]
  - MYASTHENIA GRAVIS [None]
  - INTRAOCULAR PRESSURE INCREASED [None]
  - ASTHENIA [None]
  - HEADACHE [None]
